FAERS Safety Report 6510419-0 (Version None)
Quarter: 2009Q4

REPORT INFORMATION
  Report Type: 
  Country: None (occurrence: None)
  Receive Date: 20091222
  Receipt Date: 20091214
  Transmission Date: 20100525
  Serious: Yes (Other)
  Sender: FDA-Public Use
  Company Number: A0836093A

PATIENT
  Age: 46 Year
  Sex: Male

DRUGS (2)
  1. AVANDAMET [Suspect]
     Route: 048
     Dates: start: 20091115
  2. TESTOSTERONE CYPIONATE [Suspect]
     Route: 030
     Dates: start: 20091028

REACTIONS (6)
  - BLOOD GLUCOSE DECREASED [None]
  - FACE INJURY [None]
  - LOSS OF CONSCIOUSNESS [None]
  - SKIN LACERATION [None]
  - SOMNOLENCE [None]
  - SYNCOPE [None]
